FAERS Safety Report 8254479-8 (Version None)
Quarter: 2012Q2

REPORT INFORMATION
  Report Type: 
  Country: None (occurrence: None)
  Receive Date: 20120403
  Receipt Date: 20120326
  Transmission Date: 20120825
  Serious: No
  Sender: FDA-Public Use
  Company Number: US-BIOGENIDEC-2011BI018278

PATIENT
  Age: 41 Year
  Sex: Female

DRUGS (1)
  1. TYSABRI [Suspect]
     Indication: MULTIPLE SCLEROSIS
     Route: 042
     Dates: start: 20110901

REACTIONS (9)
  - MULTIPLE ALLERGIES [None]
  - APHASIA [None]
  - FATIGUE [None]
  - WHEEZING [None]
  - ANXIETY [None]
  - MULTIPLE SCLEROSIS RELAPSE [None]
  - IMPAIRED DRIVING ABILITY [None]
  - MUSCULAR WEAKNESS [None]
  - TEMPERATURE INTOLERANCE [None]
